FAERS Safety Report 9164122 (Version 2)
Quarter: 2013Q2

REPORT INFORMATION
  Report Type: Spontaneous
  Country: JP (occurrence: JP)
  Receive Date: 20130315
  Receipt Date: 20130424
  Transmission Date: 20140414
  Serious: Yes (Other)
  Sender: FDA-Public Use
  Company Number: JP-US-EMD SERONO, INC.-7198024

PATIENT
  Age: 38 Year
  Sex: Female

DRUGS (1)
  1. SEROPHENE [Suspect]
     Indication: OVULATION INDUCTION
     Dosage: 5 DAYS
     Route: 048

REACTIONS (1)
  - Ectopic pregnancy [Recovered/Resolved]
